FAERS Safety Report 8816706 (Version 1)
Quarter: 2012Q4

REPORT INFORMATION
  Report Type: Spontaneous
  Country: US (occurrence: None)
  Receive Date: 20120928
  Receipt Date: 20120928
  Transmission Date: 20130627
  Serious: Yes (Hospitalization, Other)
  Sender: FDA-Public Use
  Company Number: 20120592

PATIENT
  Age: 73 Year
  Sex: Male

DRUGS (1)
  1. PHENYTOIN SODIUM [Suspect]
     Indication: PARTIAL SEIZURES

REACTIONS (3)
  - Drug reaction with eosinophilia and systemic symptoms [None]
  - Pancytopenia [None]
  - Drug hypersensitivity [None]
